FAERS Safety Report 9412949 (Version 2)
Quarter: 2013Q3

REPORT INFORMATION
  Report Type: Spontaneous
  Country: US (occurrence: US)
  Receive Date: 20130625
  Receipt Date: 20130719
  Transmission Date: 20140515
  Serious: Yes (Hospitalization)
  Sender: FDA-Public Use
  Company Number: 201301014

PATIENT
  Age: 74 Year
  Sex: Male
  Weight: 88.45 kg

DRUGS (9)
  1. TESTIM (TESTOSTERONE) [Suspect]
     Indication: TESTIS CANCER
     Route: 062
     Dates: start: 20130101
  2. TESTIM (TESTOSTERONE) [Suspect]
     Indication: ORCHIDECTOMY
     Route: 062
     Dates: start: 20130101
  3. TESTIM (TESTOSTERONE) [Suspect]
     Indication: ANDROGEN REPLACEMENT THERAPY
     Route: 062
     Dates: start: 20130101
  4. TESTIM (TESTOSTERONE) [Suspect]
     Route: 062
     Dates: start: 20130101
  5. ASPIRIN (ACETYLSALICYLIC ACID) [Concomitant]
  6. LISINOPRIL (LISINOPRIL) [Concomitant]
  7. LEVAQUIN (LEVOFLOXACIN) [Concomitant]
  8. OMEPRAZOLE (OMEPRAZOLE) [Concomitant]
  9. VITAMIN (VITAMINS NOS) (VITAMINS NOS) [Concomitant]

REACTIONS (4)
  - Product odour abnormal [None]
  - Product physical issue [None]
  - Thrombosis [None]
  - Pneumonia [None]
